FAERS Safety Report 9094069 (Version 1)
Quarter: 2013Q1

REPORT INFORMATION
  Report Type: Spontaneous
  Country: US (occurrence: US)
  Receive Date: 20130219
  Receipt Date: 20130219
  Transmission Date: 20140127
  Serious: Yes (Hospitalization)
  Sender: FDA-Public Use
  Company Number: US-BAYER-2013-019784

PATIENT
  Age: 26 Year
  Sex: Female

DRUGS (5)
  1. OCELLA [Suspect]
  2. HYDROCODONE/ACETAMINOPHEN [Concomitant]
     Indication: PAIN
     Dosage: 7.5/750, PRN EVERY 6 HOURS
  3. FLUCONAZOLE [Concomitant]
     Dosage: 150 MG, UNK
  4. NYSTATIN W/TRIAMCINOLONE [NYSTATIN,TRIAMCINOLONE] [Concomitant]
     Route: 061
  5. CHLORZOXAZONE [Concomitant]
     Dosage: 500 MG, UNK

REACTIONS (4)
  - Deep vein thrombosis [Recovering/Resolving]
  - Pelvic venous thrombosis [None]
  - Thrombophlebitis superficial [None]
  - Cholecystitis acute [None]
